FAERS Safety Report 21860566 (Version 1)
Quarter: 2023Q1

REPORT INFORMATION
  Report Type: Spontaneous
  Country: US (occurrence: US)
  Receive Date: 20230113
  Receipt Date: 20230113
  Transmission Date: 20230417
  Serious: No
  Sender: FDA-Public Use
  Company Number: US-NOVOPROD-922478

PATIENT
  Sex: Female

DRUGS (1)
  1. WEGOVY [Suspect]
     Active Substance: SEMAGLUTIDE
     Indication: Product use in unapproved indication
     Dosage: UNK
     Route: 058

REACTIONS (4)
  - Polymenorrhoea [Unknown]
  - Heavy menstrual bleeding [Unknown]
  - Nausea [Unknown]
  - Fatigue [Unknown]
